FAERS Safety Report 6230195-9 (Version None)
Quarter: 2009Q2

REPORT INFORMATION
  Report Type: 
  Country: None (occurrence: None)
  Receive Date: 20090615
  Receipt Date: 20090602
  Transmission Date: 20091009
  Serious: Yes (Hospitalization)
  Sender: FDA-Public Use
  Company Number: HU-MYLANLABS-2009S1009659

PATIENT
  Age: 39 Year
  Sex: Male

DRUGS (5)
  1. DICLOFENAC SODIUM [Suspect]
     Indication: INTERVERTEBRAL DISC PROTRUSION
  2. ASPIRIN [Interacting]
     Indication: ANTIPLATELET THERAPY
  3. MELOXICAM [Suspect]
     Indication: INTERVERTEBRAL DISC PROTRUSION
  4. CLOPIDOGREL [Concomitant]
     Indication: ANTIPLATELET THERAPY
  5. CYPHER [Concomitant]
     Indication: CORONARY ARTERY OCCLUSION
     Dosage: 2 OVERLAPPING STENTS (3.0 X 23MM AND 3.0 X 13MM)

REACTIONS (2)
  - DRUG INTERACTION [None]
  - THROMBOSIS IN DEVICE [None]
